FAERS Safety Report 4298729-1 (Version None)
Quarter: 2004Q1

REPORT INFORMATION
  Report Type: 
  Country: None (occurrence: None)
  Receive Date: 20040126
  Receipt Date: 20031030
  Transmission Date: 20041129
  Serious: No
  Sender: FDA-Public Use
  Company Number: USA031051026

PATIENT
  Age: 32 Year
  Sex: Male
  Weight: 114 kg

DRUGS (3)
  1. STRATTERA [Suspect]
     Dosage: 40 MG
     Dates: start: 20031001
  2. SEREVENT [Concomitant]
  3. SAW PALMETTO [Concomitant]

REACTIONS (3)
  - BLOOD PRESSURE INCREASED [None]
  - CHEST DISCOMFORT [None]
  - MUSCLE TIGHTNESS [None]
